FAERS Safety Report 5676676-8 (Version None)
Quarter: 2008Q2

REPORT INFORMATION
  Report Type: 
  Country: None (occurrence: None)
  Receive Date: 20080219
  Receipt Date: 20070625
  Transmission Date: 20081010
  Serious: Yes (Other)
  Sender: FDA-Public Use
  Company Number: AEUSA200700159

PATIENT
  Age: 69 Year
  Sex: Female
  Weight: 55.7924 kg

DRUGS (1)
  1. PROLASTIN [Suspect]
     Indication: ALPHA-1 ANTI-TRYPSIN DEFICIENCY
     Dosage: 150 MG/KG;QOW;IV
     Route: 042
     Dates: start: 20030501

REACTIONS (1)
  - HEPATITIS C POSITIVE [None]
